FAERS Safety Report 24222913 (Version 3)
Quarter: 2024Q3

REPORT INFORMATION
  Report Type: Report from Study
  Country: US (occurrence: US)
  Receive Date: 20240819
  Receipt Date: 20240926
  Transmission Date: 20241017
  Serious: Yes (Hospitalization, Other)
  Sender: SUNOVION
  Company Number: US-SUMITOMO PHARMA SWITZERLAND GMBH-2024SPA000972

PATIENT

DRUGS (9)
  1. ORGOVYX [Suspect]
     Active Substance: RELUGOLIX
     Indication: Prostate cancer
     Dosage: 360 MG
     Route: 048
     Dates: start: 20220701, end: 20220701
  2. ORGOVYX [Suspect]
     Active Substance: RELUGOLIX
     Indication: Prostate cancer metastatic
     Dosage: 120 MG, QD
     Route: 048
     Dates: start: 20220702
  3. ENZALUTAMIDE [Suspect]
     Active Substance: ENZALUTAMIDE
     Indication: Prostate cancer
     Dosage: 40 MG, QID
     Route: 048
     Dates: start: 2023
  4. ENZALUTAMIDE [Suspect]
     Active Substance: ENZALUTAMIDE
     Indication: Prostate cancer metastatic
     Dosage: 40 MG, QID
     Route: 048
     Dates: end: 20240415
  5. ENZALUTAMIDE [Suspect]
     Active Substance: ENZALUTAMIDE
     Dosage: 160 MG, QD
     Route: 048
     Dates: start: 20240417, end: 20240429
  6. ENZALUTAMIDE [Suspect]
     Active Substance: ENZALUTAMIDE
     Dosage: 160 MG, QD
     Dates: start: 20240501
  7. XTANDI [Concomitant]
     Active Substance: ENZALUTAMIDE
     Indication: Product used for unknown indication
     Dosage: UNK
     Route: 065
  8. LANTUS [Concomitant]
     Active Substance: INSULIN GLARGINE
     Dosage: 35 UNITS, NOW 42 UNITS
     Route: 065
  9. GLIMEPIRIDE [Concomitant]
     Active Substance: GLIMEPIRIDE
     Route: 065

REACTIONS (25)
  - Coronary artery occlusion [Recovered/Resolved]
  - Cardiac disorder [Not Recovered/Not Resolved]
  - Infection [Unknown]
  - Fall [Unknown]
  - Head injury [Unknown]
  - Blood pressure decreased [Recovered/Resolved]
  - Arterial stent insertion [Recovered/Resolved]
  - Rib fracture [Unknown]
  - Cerebral haematoma [Unknown]
  - Metastasis [Unknown]
  - Diabetes mellitus [Unknown]
  - Colitis [Recovered/Resolved]
  - Decreased activity [Unknown]
  - Heart rate irregular [Unknown]
  - Spinal disorder [Unknown]
  - Lung disorder [Unknown]
  - Orthostatic hypertension [Unknown]
  - Lymphadenopathy [Unknown]
  - Pain [Unknown]
  - Memory impairment [Unknown]
  - Anxiety [Unknown]
  - Depression [Unknown]
  - Fatigue [Not Recovered/Not Resolved]
  - Insomnia [Unknown]
  - Product dose omission issue [Unknown]

NARRATIVE: CASE EVENT DATE: 20240101
